FAERS Safety Report 4824501-7 (Version None)
Quarter: 2005Q4

REPORT INFORMATION
  Report Type: 
  Country: None (occurrence: None)
  Receive Date: 20051110
  Receipt Date: 20051104
  Transmission Date: 20060501
  Serious: Yes (Disabling)
  Sender: FDA-Public Use
  Company Number: MX-BOEHRINGER INGELHEIM PHARMACEUTICALS, INC.-2005-BP-19247MX

PATIENT
  Age: 76 Year
  Sex: Male

DRUGS (3)
  1. SIFROL [Suspect]
     Indication: PARKINSON'S DISEASE
     Route: 048
  2. CARBIDOPA AND LEVODOPA [Concomitant]
     Indication: PARKINSON'S DISEASE
  3. TRIHEXYPHENIDYL HCL [Concomitant]
     Indication: PARKINSON'S DISEASE

REACTIONS (4)
  - HALLUCINATION [None]
  - HALLUCINATIONS, MIXED [None]
  - PSYCHOMOTOR HYPERACTIVITY [None]
  - TREMOR [None]
